FAERS Safety Report 7036989-4 (Version None)
Quarter: 2010Q4

REPORT INFORMATION
  Report Type: 
  Country: None (occurrence: None)
  Receive Date: 20101011
  Receipt Date: 20101007
  Transmission Date: 20110411
  Serious: Yes (Hospitalization, Other)
  Sender: FDA-Public Use
  Company Number: CA-BRISTOL-MYERS SQUIBB COMPANY-15098791

PATIENT
  Age: 76 Year
  Sex: Male

DRUGS (19)
  1. ORENCIA [Suspect]
     Indication: RHEUMATOID ARTHRITIS
     Dosage: LAST INFUSION ON 13APR10,19MAY2010 NO OF INFUSION=9,Q4
     Route: 042
     Dates: start: 20091028, end: 20100519
  2. DOCUSATE SODIUM [Concomitant]
  3. ADVAIR DISKUS 100/50 [Concomitant]
  4. PREDNISONE [Concomitant]
  5. CALCITONIN-SALMON [Concomitant]
  6. CITRACAL [Concomitant]
  7. RISEDRONATE SODIUM [Concomitant]
  8. ACETAMINOPHEN [Concomitant]
  9. IPRATROPIUM BROMIDE [Concomitant]
  10. WARFARIN SODIUM [Concomitant]
  11. SENNOSIDES [Concomitant]
  12. LAXATIVES [Concomitant]
  13. FUROSEMIDE [Concomitant]
  14. DILTIAZEM HCL [Concomitant]
  15. RAMIPRIL [Concomitant]
  16. DIGOXIN [Concomitant]
  17. AZATHIOPRINE [Concomitant]
  18. APIDRA [Concomitant]
  19. LANTUS [Concomitant]
     Dosage: BRAND=LANTUS INSULIN

REACTIONS (3)
  - CARDIAC FAILURE CONGESTIVE [None]
  - LOWER RESPIRATORY TRACT INFECTION [None]
  - LUNG INFECTION [None]
